FAERS Safety Report 9373554 (Version 1)
Quarter: 2013Q2

REPORT INFORMATION
  Report Type: Other
  Country: GB (occurrence: GB)
  Receive Date: 20130627
  Receipt Date: 20130627
  Transmission Date: 20140414
  Serious: Yes (Other)
  Sender: FDA-Public Use
  Company Number: GB-WATSON-2013-11494

PATIENT
  Sex: Female

DRUGS (2)
  1. DEXAMETHASONE (UNKNOWN) [Suspect]
     Indication: POLYMYALGIA RHEUMATICA
     Dosage: UNK
     Route: 048
     Dates: start: 20130602
  2. PREDNISOLONE (UNKNOWN) [Suspect]
     Indication: POLYMYALGIA RHEUMATICA
     Dosage: UNK

REACTIONS (4)
  - Headache [Unknown]
  - Gait disturbance [Unknown]
  - Nausea [Unknown]
  - Dizziness [Unknown]
